FAERS Safety Report 6519740-3 (Version None)
Quarter: 2009Q4

REPORT INFORMATION
  Report Type: 
  Country: None (occurrence: None)
  Receive Date: 20091228
  Receipt Date: 20091228
  Transmission Date: 20100525
  Serious: Yes (Other)
  Sender: FDA-Public Use
  Company Number: None

PATIENT
  Age: 37 Year
  Sex: Female
  Weight: 59.8748 kg

DRUGS (2)
  1. LEVAQUIN [Suspect]
     Indication: BRONCHITIS
     Dosage: 500 MG 1 TIME EVERY 24HOURS PO 4 OF 7 DAYS
     Route: 048
     Dates: start: 20091222, end: 20091225
  2. LEVAQUIN [Suspect]
     Indication: UPPER RESPIRATORY TRACT INFECTION
     Dosage: 500 MG 1 TIME EVERY 24HOURS PO 4 OF 7 DAYS
     Route: 048
     Dates: start: 20091222, end: 20091225

REACTIONS (3)
  - BRAIN OEDEMA [None]
  - HEADACHE [None]
  - MUSCULOSKELETAL STIFFNESS [None]
